FAERS Safety Report 5644231-1 (Version None)
Quarter: 2008Q1

REPORT INFORMATION
  Report Type: 
  Country: None (occurrence: None)
  Receive Date: 20080227
  Receipt Date: 20080227
  Transmission Date: 20080703
  Serious: Yes (Hospitalization)
  Sender: FDA-Public Use
  Company Number: None

PATIENT
  Sex: Female
  Weight: 89.3586 kg

DRUGS (19)
  1. IXEMPRA 45 MG X 2 BOTTLES -10MG WAS WASTED BRISTON-MYERS SQUIBB [Suspect]
     Indication: BREAST CANCER METASTATIC
     Dosage: 80MG EVERY 21 DAYS IV DRIP RECEIVED ONE COURSE
     Route: 041
     Dates: start: 20080213, end: 20080213
  2. IXEMPRA 45 MG X 2 BOTTLES -10MG WAS WASTED BRISTON-MYERS SQUIBB [Suspect]
     Indication: EPIDERMAL GROWTH FACTOR RECEPTOR INCREASED
     Dosage: 80MG EVERY 21 DAYS IV DRIP RECEIVED ONE COURSE
     Route: 041
     Dates: start: 20080213, end: 20080213
  3. ADRIAMYCIN/CYTOXAN [Concomitant]
  4. TAXOL [Concomitant]
  5. POST-LUMPECTOMY RT [Concomitant]
  6. VINFLUNINE [Concomitant]
  7. HERCEPTIN [Concomitant]
  8. TYKERB/XELODA [Concomitant]
  9. OXYCODONE HCL EXTENDED-RELEASE [Concomitant]
  10. LORAZEPAM [Concomitant]
  11. COMPAZINE [Concomitant]
  12. PHENERGAN HCL [Concomitant]
  13. ACETAMINOPHEN AND HYDROCODONE BITARTRATE [Concomitant]
  14. DILAUDID [Concomitant]
  15. SILVADINE [Concomitant]
  16. MYCELEX [Concomitant]
  17. LEVAQUIN [Concomitant]
  18. MILK OF MAGNESIA [Concomitant]
  19. ZOFRAN [Concomitant]

REACTIONS (10)
  - ABDOMINAL PAIN [None]
  - BACK PAIN [None]
  - CHEST PAIN [None]
  - GALLBLADDER DISORDER [None]
  - NAUSEA [None]
  - NEUTROPENIA [None]
  - ODYNOPHAGIA [None]
  - RECALL PHENOMENON [None]
  - THROMBOCYTOPENIA [None]
  - VOMITING [None]
